FAERS Safety Report 18817350 (Version 1)
Quarter: 2021Q1

REPORT INFORMATION
  Report Type: Spontaneous
  Country: GB (occurrence: GB)
  Receive Date: 20210201
  Receipt Date: 20210201
  Transmission Date: 20210419
  Serious: Yes (Other)
  Sender: FDA-Public Use
  Company Number: GB-ACCORD-215873

PATIENT
  Age: 77 Year
  Sex: Male
  Weight: 75 kg

DRUGS (8)
  1. ESLICARBAZEPINE [Interacting]
     Active Substance: ESLICARBAZEPINE
     Indication: EPILEPSY
     Dosage: 400MG NOCTE INCREASING FROM THERE TO 600MG THEN REVIEW
     Route: 048
     Dates: start: 20200812
  2. ATROVENT [Concomitant]
     Active Substance: IPRATROPIUM BROMIDE
     Dosage: PUFFS
  3. EPILIM [Interacting]
     Active Substance: VALPROATE SODIUM
     Indication: EPILEPSY
     Route: 048
     Dates: end: 20200812
  4. PREDNISOLONE. [Concomitant]
     Active Substance: PREDNISOLONE
  5. CREON [Concomitant]
     Active Substance: PANCRELIPASE AMYLASE\PANCRELIPASE LIPASE\PANCRELIPASE PROTEASE
     Dosage: WITH FOOD 3 WITH MAIN MEALS/4 WITH PUDDINGS/2 WITH SNACKS.
  6. TACROLIMUS. [Suspect]
     Active Substance: TACROLIMUS
     Indication: SOLID ORGAN TRANSPLANT
     Dosage: AT TIME OF INTERACTION
     Route: 048
     Dates: start: 20011101
  7. CLONAZEPAM. [Concomitant]
     Active Substance: CLONAZEPAM
     Dosage: AT NIGHT
  8. CELLCEPT [Concomitant]
     Active Substance: MYCOPHENOLATE MOFETIL\MYCOPHENOLATE MOFETIL HYDROCHLORIDE

REACTIONS (1)
  - Drug interaction [Unknown]

NARRATIVE: CASE EVENT DATE: 20200812
